FAERS Safety Report 9411918 (Version 2)
Quarter: 2013Q3

REPORT INFORMATION
  Report Type: Report from Study
  Country: CA (occurrence: CA)
  Receive Date: 20130722
  Receipt Date: 20130802
  Transmission Date: 20140515
  Serious: Yes (Death)
  Sender: FDA-Public Use
  Company Number: PHHY2013CA077308

PATIENT
  Age: 66 Year
  Sex: Male

DRUGS (6)
  1. CLOZARIL [Suspect]
     Indication: SCHIZOPHRENIA, PARANOID TYPE
     Dosage: 100 MG, UNK
     Dates: start: 20130527, end: 20130629
  2. METFORMIN [Concomitant]
     Dosage: 500 MG, BID
  3. ATENOLOL [Concomitant]
     Dosage: 100 MG, QD
  4. AMLODIPINE [Concomitant]
     Dosage: 10 MG, UNK
  5. OMEGA 3 [Concomitant]
     Dosage: 500 U, TID
  6. AMITRIPTYLINE [Concomitant]
     Dosage: 20 MG, UNK

REACTIONS (2)
  - Gallbladder disorder [Fatal]
  - Pancreatitis acute [Fatal]
